FAERS Safety Report 5802411-6 (Version None)
Quarter: 2008Q3

REPORT INFORMATION
  Report Type: 
  Country: None (occurrence: None)
  Receive Date: 20080707
  Receipt Date: 20080624
  Transmission Date: 20090109
  Serious: Yes (Other)
  Sender: FDA-Public Use
  Company Number: PL-GENENTECH-263772

PATIENT
  Age: 8 Year
  Sex: Male

DRUGS (3)
  1. MABTHERA [Suspect]
     Indication: GLOMERULONEPHRITIS
     Dosage: 100 MG, 1/WEEK
     Route: 065
  2. CELLCEPT [Concomitant]
     Indication: DRUG USE FOR UNKNOWN INDICATION
  3. CYCLOSPORINE [Concomitant]
     Indication: DRUG USE FOR UNKNOWN INDICATION

REACTIONS (1)
  - RENAL FAILURE [None]
